FAERS Safety Report 9782300 (Version 1)
Quarter: 2013Q4

REPORT INFORMATION
  Report Type: Spontaneous
  Country: US (occurrence: US)
  Receive Date: 20131226
  Receipt Date: 20131226
  Transmission Date: 20140711
  Serious: Yes (Other)
  Sender: FDA-Public Use
  Company Number: US-UCBSA-106480

PATIENT
  Sex: Male

DRUGS (5)
  1. LORTAB [Suspect]
     Dosage: 10 MG
  2. XANAX [Suspect]
     Dosage: 1 MG
  3. GABAPENTIN [Concomitant]
     Dosage: 400 MG
  4. WELLBUTRION [Concomitant]
     Dosage: 300 MG
  5. LAMICTAL [Concomitant]
     Dosage: 300 MG

REACTIONS (1)
  - Suicide attempt [Unknown]
